FAERS Safety Report 24554399 (Version 1)
Quarter: 2024Q4

REPORT INFORMATION
  Report Type: Spontaneous
  Country: US (occurrence: US)
  Receive Date: 20241028
  Receipt Date: 20241028
  Transmission Date: 20250115
  Serious: No
  Sender: BRISTOL-MYERS SQUIBB COMPANY
  Company Number: US-BRISTOL-MYERS SQUIBB COMPANY-2024-168462

PATIENT
  Age: 74 Year
  Sex: Female
  Weight: 64.41 kg

DRUGS (1)
  1. IDHIFA [Suspect]
     Active Substance: ENASIDENIB MESYLATE
     Indication: Non-Hodgkin^s lymphoma
     Route: 048
     Dates: start: 20241008

REACTIONS (3)
  - Nausea [Unknown]
  - Pruritus [Unknown]
  - Off label use [Unknown]
